FAERS Safety Report 7218372-1 (Version None)
Quarter: 2011Q1

REPORT INFORMATION
  Report Type: 
  Country: None (occurrence: None)
  Receive Date: 20110110
  Receipt Date: 20110103
  Transmission Date: 20110831
  Serious: Yes (Hospitalization)
  Sender: FDA-Public Use
  Company Number: US-PFIZER INC-2011000819

PATIENT
  Sex: Male
  Weight: 102.4 kg

DRUGS (1)
  1. XYNTHA [Suspect]
     Indication: HAEMOPHILIA
     Dosage: UNK
     Dates: start: 20090215

REACTIONS (1)
  - ELBOW OPERATION [None]
